FAERS Safety Report 5352722-6 (Version None)
Quarter: 2007Q2

REPORT INFORMATION
  Report Type: 
  Country: None (occurrence: None)
  Receive Date: 20070611
  Receipt Date: 20070529
  Transmission Date: 20071010
  Serious: Yes (Death, Other)
  Sender: FDA-Public Use
  Company Number: US-SHR-US-2007-013215

PATIENT
  Age: 59 Year
  Sex: Female

DRUGS (23)
  1. MAGNEVIST [Suspect]
     Dosage: 40 ML, 1 DOSE
     Route: 042
     Dates: start: 20041015, end: 20041015
  2. MAGNEVIST [Suspect]
     Dosage: 70 ML, 1 DOSE
     Route: 042
     Dates: start: 20050624, end: 20050624
  3. MAGNEVIST [Suspect]
     Dosage: 60 ML, 1 DOSE
     Route: 042
     Dates: start: 20050628, end: 20050628
  4. ANTI-COAGULANT THERAPY [Concomitant]
  5. SEVELAMER [Concomitant]
  6. RISS [Concomitant]
  7. HEPARIN [Concomitant]
  8. CALCIUM CARBONATE [Concomitant]
  9. NEPHROCAPS [Concomitant]
  10. NPH INSULIN [Concomitant]
  11. COZAAR [Concomitant]
  12. NIFEDIPINE [Concomitant]
  13. CALCITRIOL [Concomitant]
  14. RIFAMPIN [Concomitant]
  15. COUMADIN [Concomitant]
  16. VANCOMYCIN HCL [Concomitant]
  17. LEVOFLOXACIN [Concomitant]
  18. PLAVIX [Concomitant]
  19. DUONEBS [Concomitant]
  20. OXYCODONE HCL [Concomitant]
  21. COLACE [Concomitant]
  22. LABETALOL HCL [Concomitant]
  23. ASPIRIN [Concomitant]

REACTIONS (3)
  - DEATH [None]
  - NEPHROGENIC FIBROSING DERMOPATHY [None]
  - SERUM FERRITIN INCREASED [None]
